FAERS Safety Report 10261651 (Version 1)
Quarter: 2014Q2

REPORT INFORMATION
  Report Type: Spontaneous
  Country: FI (occurrence: FI)
  Receive Date: 20140626
  Receipt Date: 20140626
  Transmission Date: 20141212
  Serious: No
  Sender: FDA-Public Use
  Company Number: FI-SA-2014SA060557

PATIENT
  Sex: Female

DRUGS (1)
  1. ARAVA [Suspect]
     Indication: PRODUCT USED FOR UNKNOWN INDICATION
     Dosage: STRENGTH: 20 MG. TREATMENT START DATE- 6 WEEKS BEFORE THE PATIENT GOT PREGNANT.
     Route: 065

REACTIONS (1)
  - Exposure during pregnancy [Unknown]
